FAERS Safety Report 6661688-8 (Version None)
Quarter: 2010Q1

REPORT INFORMATION
  Report Type: 
  Country: None (occurrence: None)
  Receive Date: 20100331
  Receipt Date: 20090428
  Transmission Date: 20100710
  Serious: No
  Sender: FDA-Public Use
  Company Number: US-BRISTOL-MYERS SQUIBB COMPANY-14590632

PATIENT
  Age: 84 Year
  Sex: Male

DRUGS (4)
  1. ERBITUX [Suspect]
     Indication: HEAD AND NECK CANCER
     Dosage: RECEIVED LOADING DOSE; THEN RECEIVED WEEKLY DOSE  AS RECHALLENGE
     Route: 042
     Dates: start: 20090326, end: 20090326
  2. BENADRYL [Concomitant]
  3. ALOXI [Concomitant]
  4. ANTIHYPERTENSIVE [Concomitant]
     Indication: HYPERTENSION

REACTIONS (2)
  - DYSPNOEA [None]
  - HYPERTENSION [None]
